FAERS Safety Report 20324365 (Version 3)
Quarter: 2022Q3

REPORT INFORMATION
  Report Type: Spontaneous
  Country: US (occurrence: US)
  Receive Date: 20220111
  Receipt Date: 20220912
  Transmission Date: 20221027
  Serious: No
  Sender: FDA-Public Use
  Company Number: US-MYOVANT SCIENCES GMBH-2021MYSCI1000203

PATIENT
  Sex: Male

DRUGS (2)
  1. ORGOVYX [Suspect]
     Active Substance: RELUGOLIX
     Indication: Prostate cancer
     Dosage: 120 MILLIGRAM, QD
     Route: 048
     Dates: start: 20210809, end: 20211010
  2. ORGOVYX [Suspect]
     Active Substance: RELUGOLIX
     Dosage: UNK

REACTIONS (11)
  - Burning sensation [Unknown]
  - Muscle atrophy [Unknown]
  - Sleep disorder [Unknown]
  - Dyspnoea exertional [Unknown]
  - Dizziness exertional [Recovering/Resolving]
  - Pain [Recovered/Resolved]
  - Hot flush [Not Recovered/Not Resolved]
  - Asthenia [Not Recovered/Not Resolved]
  - Arthralgia [Not Recovered/Not Resolved]
  - Blood glucose increased [Unknown]
  - Fatigue [Unknown]
